FAERS Safety Report 9890906 (Version 1)
Quarter: 2014Q1

REPORT INFORMATION
  Report Type: Spontaneous
  Country: TN (occurrence: None)
  Receive Date: 20140210
  Receipt Date: 20140210
  Transmission Date: 20141002
  Serious: Yes (Other)
  Sender: FDA-Public Use
  Company Number: 2014AL000098

PATIENT
  Age: 20 Year
  Sex: Female

DRUGS (2)
  1. DOXORUBICIN [Suspect]
     Indication: ABDOMINAL WALL NEOPLASM
  2. IFOSFAMIDE (IFOSFAMIDE) [Suspect]
     Indication: ABDOMINAL WALL NEOPLASM

REACTIONS (1)
  - Pancreatitis acute [None]
